FAERS Safety Report 14141397 (Version 1)
Quarter: 2017Q4

REPORT INFORMATION
  Report Type: Spontaneous
  Country: MX (occurrence: MX)
  Receive Date: 20171030
  Receipt Date: 20171030
  Transmission Date: 20180321
  Serious: Yes (Hospitalization)
  Sender: FDA-Public Use
  Company Number: MX-TEVA-819181ISR

PATIENT
  Age: 66 Year
  Sex: Female
  Weight: 58 kg

DRUGS (3)
  1. MIRTAZAPINE. [Concomitant]
     Active Substance: MIRTAZAPINE
     Route: 048
     Dates: start: 2016
  2. DIOSMIN/HESPIRIDIN [Concomitant]
     Indication: CARDIOVASCULAR DISORDER
     Dosage: .5 TABLET DAILY;
     Route: 048
  3. AZILECT [Suspect]
     Active Substance: RASAGILINE MESYLATE
     Indication: PARKINSON^S DISEASE
     Dosage: 1 MILLIGRAM DAILY;
     Route: 048
     Dates: start: 201511

REACTIONS (9)
  - Post procedural bile leak [Recovering/Resolving]
  - Neuropathy peripheral [Recovering/Resolving]
  - Abdominal discomfort [Recovering/Resolving]
  - Oral discomfort [Recovering/Resolving]
  - Abdominal pain [Recovering/Resolving]
  - Infection [Recovering/Resolving]
  - Gallbladder operation [Recovering/Resolving]
  - Aphasia [Recovering/Resolving]
  - Dyspnoea [Recovering/Resolving]

NARRATIVE: CASE EVENT DATE: 201709
